FAERS Safety Report 6379117-0 (Version None)
Quarter: 2009Q3

REPORT INFORMATION
  Report Type: 
  Country: None (occurrence: None)
  Receive Date: 20090923
  Receipt Date: 20090923
  Transmission Date: 20100115
  Serious: Yes (Life-Threatening, Hospitalization)
  Sender: FDA-Public Use
  Company Number: None

PATIENT
  Age: 76 Year
  Sex: Female
  Weight: 87 kg

DRUGS (13)
  1. KEPPRA [Suspect]
     Indication: CONVULSION
     Dosage: 500MG PO BID
     Route: 048
     Dates: start: 20090508, end: 20090521
  2. HEPARIN [Concomitant]
  3. ASPIRIN [Concomitant]
  4. EPOETIN [Concomitant]
  5. CINACALCET [Concomitant]
  6. PHENOBARBITAL [Concomitant]
  7. HYDROMORPHONE [Concomitant]
  8. SEVELAMER [Concomitant]
  9. LANSOPRAZOLE [Concomitant]
  10. METOPROLOL [Concomitant]
  11. LABETALOL HCL [Concomitant]
  12. LIPITOR [Concomitant]
  13. ARGATROBAN [Concomitant]

REACTIONS (1)
  - PLATELET COUNT DECREASED [None]
